FAERS Safety Report 26122560 (Version 1)
Quarter: 2025Q4

REPORT INFORMATION
  Report Type: Spontaneous
  Country: EU (occurrence: EU)
  Receive Date: 20251204
  Receipt Date: 20251204
  Transmission Date: 20260117
  Serious: Yes (Hospitalization)
  Sender: MERCK SHARP & DOHME LLC
  Company Number: None

PATIENT
  Age: 62 Year
  Sex: Male
  Weight: 98 kg

DRUGS (6)
  1. TEMODAL [Suspect]
     Active Substance: TEMOZOLOMIDE
     Indication: Glioma
     Route: 042
     Dates: start: 20251111, end: 20251113
  2. TANGANIL 500 mg, tablet [Concomitant]
  3. MEDROL 100 mg, tablet [Concomitant]
  4. MEDROL 100 mg, tablet [Concomitant]
  5. LEVETIRACETAM [Concomitant]
     Active Substance: LEVETIRACETAM
  6. DUPHALAC [Concomitant]
     Active Substance: LACTULOSE

REACTIONS (3)
  - Thrombocytopenia [Recovering/Resolving]
  - Contraindicated product administered [Recovered/Resolved]
  - Condition aggravated [Recovering/Resolving]

NARRATIVE: CASE EVENT DATE: 20251111
